FAERS Safety Report 9152431 (Version 1)
Quarter: 2013Q1

REPORT INFORMATION
  Report Type: Spontaneous
  Country: JP (occurrence: JP)
  Receive Date: 20130308
  Receipt Date: 20130308
  Transmission Date: 20140127
  Serious: Yes (Other)
  Sender: FDA-Public Use
  Company Number: JP-PFIZER INC-2013079049

PATIENT
  Age: 68 Year
  Sex: Female

DRUGS (3)
  1. CELECOX [Suspect]
     Indication: OSTEOARTHRITIS
     Dosage: 200 MG, DAILY
     Route: 048
     Dates: start: 20121219, end: 20121221
  2. SECTOR [Concomitant]
     Dosage: UNK
  3. HYALURONATE SODIUM [Concomitant]
     Dosage: UNK

REACTIONS (1)
  - Dermatitis bullous [Recovered/Resolved]
